FAERS Safety Report 6458758-6 (Version None)
Quarter: 2009Q4

REPORT INFORMATION
  Report Type: 
  Country: None (occurrence: None)
  Receive Date: 20091127
  Receipt Date: 20091112
  Transmission Date: 20100525
  Serious: No
  Sender: FDA-Public Use
  Company Number: US-ROCHE-669706

PATIENT
  Age: 32 Year
  Sex: Female

DRUGS (6)
  1. OSELTAMIVIR [Suspect]
     Indication: AVIAN INFLUENZA
     Route: 048
  2. OSELTAMIVIR [Suspect]
     Dosage: FOR 5 DAYS
     Route: 048
  3. CEFTRIAXONE SODIUM [Suspect]
     Indication: PNEUMONIA BACTERIAL
     Route: 065
  4. AZITHROMYCIN [Concomitant]
  5. VANCOMYCIN [Concomitant]
  6. CLINDAMYCIN [Concomitant]

REACTIONS (2)
  - NO ADVERSE EVENT [None]
  - PREGNANCY [None]
